FAERS Safety Report 8776590 (Version 2)
Quarter: 2012Q4

REPORT INFORMATION
  Report Type: 
  Country: CN (occurrence: CN)
  Receive Date: 20120910
  Receipt Date: 20120914
  Transmission Date: 20130627
  Serious: Yes (Life-Threatening, Hospitalization, Other)
  Sender: FDA-Public Use
  Company Number: PHHY2012CN077864

PATIENT

DRUGS (2)
  1. TEGRETOL [Suspect]
     Indication: EPILEPSY
     Dosage: 200 mg, BID
     Route: 048
     Dates: start: 20120821, end: 20120902
  2. ANIRACETAM [Concomitant]
     Indication: EPILEPSY
     Dosage: 1 DF, BID (in the morning and evening separately)
     Dates: start: 20120821, end: 20120902

REACTIONS (21)
  - Stevens-Johnson syndrome [Not Recovered/Not Resolved]
  - Pyrexia [Not Recovered/Not Resolved]
  - Rash erythematous [Recovering/Resolving]
  - Dysphagia [Not Recovered/Not Resolved]
  - Conjunctival hyperaemia [Not Recovered/Not Resolved]
  - Pharyngeal erosion [Not Recovered/Not Resolved]
  - Purulent discharge [Not Recovered/Not Resolved]
  - Liver function test abnormal [Not Recovered/Not Resolved]
  - Lip swelling [Not Recovered/Not Resolved]
  - Mucosal erosion [Not Recovered/Not Resolved]
  - Cheilitis [Not Recovered/Not Resolved]
  - Pain of skin [Recovering/Resolving]
  - Malaise [Not Recovered/Not Resolved]
  - Lip erosion [Not Recovered/Not Resolved]
  - Rash [Recovering/Resolving]
  - Pruritus [Recovering/Resolving]
  - Pain [Not Recovered/Not Resolved]
  - Mouth ulceration [Not Recovered/Not Resolved]
  - Drug hypersensitivity [Not Recovered/Not Resolved]
  - Mental status changes [Not Recovered/Not Resolved]
  - Poor quality sleep [Not Recovered/Not Resolved]
